FAERS Safety Report 23702178 (Version 1)
Quarter: 2024Q2

REPORT INFORMATION
  Report Type: Spontaneous
  Country: US (occurrence: US)
  Receive Date: 20240403
  Receipt Date: 20240403
  Transmission Date: 20240716
  Serious: No
  Sender: FDA-Public Use
  Company Number: US-SA-SAC20240326000197

PATIENT
  Age: 67 Year
  Sex: Female

DRUGS (1)
  1. TOUJEO [Suspect]
     Active Substance: INSULIN GLARGINE
     Dosage: UNK
     Route: 065

REACTIONS (11)
  - Genital discomfort [Unknown]
  - Petechiae [Unknown]
  - Eye swelling [Unknown]
  - Eye pruritus [Unknown]
  - Epistaxis [Unknown]
  - Oral mucosal exfoliation [Unknown]
  - Mouth injury [Unknown]
  - Oral discomfort [Unknown]
  - Restless legs syndrome [Unknown]
  - Nasal oedema [Unknown]
  - Drug ineffective [Unknown]
